FAERS Safety Report 5904751-9 (Version None)
Quarter: 2008Q4

REPORT INFORMATION
  Report Type: 
  Country: None (occurrence: None)
  Receive Date: 20081001
  Receipt Date: 20080922
  Transmission Date: 20090506
  Serious: Yes (Hospitalization)
  Sender: FDA-Public Use
  Company Number: SE-JNJFOC-20080905940

PATIENT
  Age: 12 Month
  Sex: Male

DRUGS (3)
  1. IPREN [Suspect]
     Indication: PRURITUS
     Route: 054
  2. IPREN [Suspect]
     Indication: PYREXIA
     Dosage: 65.25 MG TIMES 4 DOSES TOTAL
     Route: 054
  3. ACETAMINOPHEN [Concomitant]
     Indication: PYREXIA

REACTIONS (1)
  - RENAL FAILURE [None]
